FAERS Safety Report 24855252 (Version 1)
Quarter: 2025Q1

REPORT INFORMATION
  Report Type: Spontaneous
  Country: MX (occurrence: MX)
  Receive Date: 20250117
  Receipt Date: 20250117
  Transmission Date: 20250408
  Serious: Yes (Death, Other)
  Sender: SANDOZ
  Company Number: MX-002147023-NVSC2025MX006719

PATIENT
  Age: 85 Year
  Sex: Female

DRUGS (1)
  1. EXELON [Suspect]
     Active Substance: RIVASTIGMINE TARTRATE
     Indication: Product used for unknown indication
     Dosage: 1 DOSAGE FORM, QD (EXTENDED RELEASE)
     Route: 062
     Dates: start: 20241109, end: 202501

REACTIONS (1)
  - Cardiac failure [Fatal]
